FAERS Safety Report 5081854-5 (Version None)
Quarter: 2006Q3

REPORT INFORMATION
  Report Type: 
  Country: None (occurrence: None)
  Receive Date: 20060816
  Receipt Date: 20060804
  Transmission Date: 20061208
  Serious: Yes (Hospitalization)
  Sender: FDA-Public Use
  Company Number: US-BRISTOL-MYERS SQUIBB COMPANY-13465679

PATIENT
  Age: 60 Year
  Sex: Male
  Weight: 68 kg

DRUGS (8)
  1. PARAPLATIN [Suspect]
     Indication: NON-SMALL CELL LUNG CANCER
     Route: 042
  2. GEMZAR [Suspect]
  3. MS CONTIN [Concomitant]
  4. METHADONE HCL [Concomitant]
  5. LEXAPRO [Concomitant]
  6. ZOFRAN [Concomitant]
  7. COMPAZINE [Concomitant]
  8. PROMETHAZINE [Concomitant]

REACTIONS (5)
  - AGITATION [None]
  - BLOOD PRESSURE INCREASED [None]
  - CONFUSIONAL STATE [None]
  - PAIN [None]
  - REPETITIVE SPEECH [None]
